FAERS Safety Report 6985756-6 (Version None)
Quarter: 2010Q3

REPORT INFORMATION
  Report Type: 
  Country: None (occurrence: None)
  Receive Date: 20100915
  Receipt Date: 20100913
  Transmission Date: 20110219
  Serious: Yes (Death, Hospitalization, Other)
  Sender: FDA-Public Use
  Company Number: IN-ROXANE LABORATORIES, INC.-2010-RO-01210RO

PATIENT
  Age: 24 Year
  Sex: Male

DRUGS (11)
  1. DEXAMETHASONE [Suspect]
     Route: 042
  2. DEXAMETHASONE [Suspect]
     Route: 042
  3. FLUCONAZOLE [Suspect]
  4. CLOTRIMAZOLE [Suspect]
  5. MANNITOL [Suspect]
     Route: 042
  6. DEXTROSE [Suspect]
     Route: 042
  7. MULTI-VITAMIN [Suspect]
     Route: 042
  8. ECOSPRIN [Suspect]
  9. CETRIZINE [Suspect]
  10. CANDID B [Suspect]
     Route: 061
  11. BETADINE [Suspect]
     Route: 061

REACTIONS (12)
  - BODY TINEA [None]
  - CEREBRAL ATROPHY [None]
  - CEREBROVASCULAR ACCIDENT [None]
  - CUSHING'S SYNDROME [None]
  - DRUG ABUSE [None]
  - ENCEPHALOPATHY [None]
  - GENITAL CANDIDIASIS [None]
  - HYDROCEPHALUS [None]
  - INTERTRIGO [None]
  - NERVOUS SYSTEM DISORDER [None]
  - ORAL CANDIDIASIS [None]
  - PYREXIA [None]
